FAERS Safety Report 7178879-2 (Version None)
Quarter: 2010Q4

REPORT INFORMATION
  Report Type: 
  Country: None (occurrence: None)
  Receive Date: 20101209
  Receipt Date: 20101125
  Transmission Date: 20110411
  Serious: Yes (Hospitalization)
  Sender: FDA-Public Use
  Company Number: 1000017587

PATIENT
  Age: 50 Year
  Sex: Male

DRUGS (11)
  1. MILNACIPRAN (MILNACIPRAN HYDROCHLORIDE) (CAPSULES) [Suspect]
     Indication: DEPRESSION
     Dosage: (1 IN 1 D),ORAL
     Route: 048
  2. SORIATANE [Suspect]
     Dosage: 10 MG (10 MG,1 IN 1 D),ORAL ; 300 MG (300 MG,ONCE),ORAL
     Route: 048
     Dates: start: 20100117, end: 20100117
  3. CRESTOR [Suspect]
     Dosage: 10 MG (10 MG,1 IN 1 D),ORAL
     Route: 048
  4. ALDACTONE [Suspect]
     Dosage: 50/30 (25/15, 2 DOSES DAILY),ORAL
     Route: 048
  5. CORVASAL (MOLSIDOMINE) [Suspect]
     Dosage: 6 MG (2 MG,3 IN 1 D),ORAL
     Route: 048
  6. NEXIUM [Concomitant]
  7. PLAVIX [Concomitant]
  8. KARDEGIC (ACETYLSALICYLIC LYSINE) (ACETYLSALICYLIC LYSINE) [Concomitant]
  9. TARDYFERON (FERROUS SULPHATE SESQUIHYDRATE) (TABLETS) (FERROUS SULPHAT [Concomitant]
  10. SYMBICORT (BUDESONIDE, FORMOTEROL FUMARATE) (BUDESONIDE, FORMOTEROL FU [Concomitant]
  11. VENTOLINE (SALBUTAMOL SULFATE) (SALBUTAMOL SULFATE) [Concomitant]

REACTIONS (13)
  - ACUTE RESPIRATORY DISTRESS SYNDROME [None]
  - BRONCHOSPASM [None]
  - DRUG TOXICITY [None]
  - HYPERCAPNIA [None]
  - HYPERKALAEMIA [None]
  - LUNG DISORDER [None]
  - METABOLIC ACIDOSIS [None]
  - MULTIPLE DRUG OVERDOSE [None]
  - RENAL FAILURE [None]
  - RHABDOMYOLYSIS [None]
  - STAPHYLOCOCCAL INFECTION [None]
  - SUICIDE ATTEMPT [None]
  - VENTRICULAR TACHYCARDIA [None]
